FAERS Safety Report 7245764-7 (Version None)
Quarter: 2011Q1

REPORT INFORMATION
  Report Type: 
  Country: None (occurrence: None)
  Receive Date: 20110126
  Receipt Date: 20110121
  Transmission Date: 20110831
  Serious: No
  Sender: FDA-Public Use
  Company Number: US-PFIZER INC-2011017321

PATIENT
  Sex: Female

DRUGS (2)
  1. GEODON [Suspect]
     Dosage: UNK
     Dates: start: 20110101
  2. REMERON [Suspect]
     Indication: INSOMNIA
     Dosage: 30 MG, AS NEEDED

REACTIONS (1)
  - ABNORMAL DREAMS [None]
